FAERS Safety Report 24089360 (Version 1)
Quarter: 2024Q3

REPORT INFORMATION
  Report Type: Report from Study
  Country: IT (occurrence: IT)
  Receive Date: 20240715
  Receipt Date: 20240715
  Transmission Date: 20241017
  Serious: Yes (Other)
  Sender: JOHNSON AND JOHNSON
  Company Number: IT-JNJFOC-20240721635

PATIENT

DRUGS (3)
  1. RILPIVIRINE [Suspect]
     Active Substance: RILPIVIRINE
     Indication: HIV infection
     Route: 030
  2. CABOTEGRAVIR [Suspect]
     Active Substance: CABOTEGRAVIR
     Indication: HIV infection
     Route: 030
  3. DOLUTEGRAVIR [Suspect]
     Active Substance: DOLUTEGRAVIR
     Indication: HIV infection
     Route: 065

REACTIONS (12)
  - Acute hepatitis B [Unknown]
  - Virologic failure [Unknown]
  - Injection site reaction [Unknown]
  - Weight increased [Unknown]
  - Pyrexia [Unknown]
  - Fatigue [Unknown]
  - Drug hypersensitivity [Unknown]
  - Joint stiffness [Unknown]
  - Arthralgia [Unknown]
  - Nervous system disorder [Unknown]
  - Gastrointestinal disorder [Unknown]
  - Exposure during pregnancy [Unknown]
